FAERS Safety Report 4661310-6 (Version None)
Quarter: 2005Q2

REPORT INFORMATION
  Report Type: 
  Country: None (occurrence: None)
  Receive Date: 20050513
  Receipt Date: 20050502
  Transmission Date: 20051028
  Serious: Yes (Other)
  Sender: FDA-Public Use
  Company Number: JP-JNJFOC-20050500752

PATIENT
  Age: 54 Year
  Sex: Female

DRUGS (4)
  1. TAVANIC [Suspect]
     Indication: TUBERCULOSIS
     Route: 049
     Dates: start: 20040402
  2. AMIKACIN [Suspect]
     Indication: TUBERCULOSIS
     Route: 042
     Dates: start: 20040216, end: 20040714
  3. PYRAZINAMIDE [Concomitant]
     Indication: TUBERCULOSIS
     Route: 049
     Dates: start: 20030912
  4. ETHAMBUTOL HCL [Concomitant]
     Indication: TUBERCULOSIS
     Dates: start: 20030912

REACTIONS (1)
  - DEAFNESS NEUROSENSORY [None]
